FAERS Safety Report 7277696-2 (Version None)
Quarter: 2011Q1

REPORT INFORMATION
  Report Type: 
  Country: None (occurrence: None)
  Receive Date: 20110207
  Receipt Date: 20110201
  Transmission Date: 20110831
  Serious: No
  Sender: FDA-Public Use
  Company Number: US-PFIZER INC-2011023630

PATIENT
  Sex: Female

DRUGS (2)
  1. ZITHROMAX [Suspect]
     Indication: FEELING DRUNK
     Dosage: 500 MG DAILY
     Route: 048
     Dates: start: 20110101, end: 20110101
  2. ZITHROMAX [Suspect]
     Dosage: 250 MG DAILY
     Route: 048
     Dates: start: 20110101, end: 20110101

REACTIONS (1)
  - ANXIETY [None]
